FAERS Safety Report 9879949 (Version 1)
Quarter: 2014Q1

REPORT INFORMATION
  Report Type: Spontaneous
  Country: US (occurrence: US)
  Receive Date: 20140207
  Receipt Date: 20140207
  Transmission Date: 20141002
  Serious: No
  Sender: FDA-Public Use
  Company Number: US-009507513-1402USA001699

PATIENT
  Age: 18 Year
  Sex: Female
  Weight: 51.25 kg

DRUGS (2)
  1. NEXPLANON [Suspect]
     Indication: CONTRACEPTION
     Dosage: UNK
     Route: 059
     Dates: start: 20131210
  2. IMITREX (SUMATRIPTAN) [Concomitant]

REACTIONS (1)
  - Headache [Unknown]
